FAERS Safety Report 16530575 (Version 2)
Quarter: 2019Q3

REPORT INFORMATION
  Report Type: Spontaneous
  Country: US (occurrence: US)
  Receive Date: 20190704
  Receipt Date: 20190715
  Transmission Date: 20191004
  Serious: No
  Sender: FDA-Public Use
  Company Number: US-CELGENEUS-USA-20190611234

PATIENT
  Sex: Female

DRUGS (1)
  1. OTEZLA [Suspect]
     Active Substance: APREMILAST
     Indication: PSORIASIS
     Dosage: 60 MILLIGRAM
     Route: 048
     Dates: start: 20190108, end: 20190307

REACTIONS (4)
  - Dizziness [Unknown]
  - Somnolence [Unknown]
  - Panic reaction [Unknown]
  - Gait inability [Unknown]

NARRATIVE: CASE EVENT DATE: 2019
